FAERS Safety Report 5890909-4 (Version None)
Quarter: 2008Q3

REPORT INFORMATION
  Report Type: 
  Country: None (occurrence: None)
  Receive Date: 20080922
  Receipt Date: 20080912
  Transmission Date: 20090109
  Serious: Yes (Hospitalization)
  Sender: FDA-Public Use
  Company Number: A0699121A

PATIENT
  Age: 47 Year
  Sex: Male
  Weight: 90.9 kg

DRUGS (2)
  1. AVANDIA [Suspect]
     Indication: DIABETES MELLITUS
     Dosage: 4MG PER DAY
     Route: 048
     Dates: start: 20040407, end: 20051010
  2. AVANDAMET [Suspect]
     Dosage: 100MG TWICE PER DAY
     Route: 048
     Dates: start: 20050705, end: 20060203

REACTIONS (3)
  - CHEST PAIN [None]
  - INJURY [None]
  - MYOCARDIAL INFARCTION [None]
